FAERS Safety Report 23136045 (Version 1)
Quarter: 2023Q4

REPORT INFORMATION
  Report Type: Report from Study
  Country: DE (occurrence: DE)
  Receive Date: 20231102
  Receipt Date: 20231102
  Transmission Date: 20240110
  Serious: Yes (Hospitalization, Other)
  Sender: FDA-Public Use
  Company Number: DE-ABBVIE-5462534

PATIENT
  Sex: Male

DRUGS (22)
  1. CARBIDOPA\LEVODOPA [Suspect]
     Active Substance: CARBIDOPA\LEVODOPA
     Indication: Progressive supranuclear palsy
     Route: 050
     Dates: start: 202310
  2. CARBIDOPA\LEVODOPA [Suspect]
     Active Substance: CARBIDOPA\LEVODOPA
     Indication: Parkinson^s disease
     Dosage: MD: 4.5 ML CRD: 4.8ML/H CRN: 1.8 ML/H ED: 1.0 ML
     Route: 050
     Dates: start: 20230228
  3. CARBIDOPA\LEVODOPA [Suspect]
     Active Substance: CARBIDOPA\LEVODOPA
     Dosage: MD: 4.5 ML CRD: 4.8ML/H CRN: 1.8 ML/H ED: 1.0 ML
     Dates: start: 20230228, end: 20231018
  4. METAMIZOLE SODIUM [Concomitant]
     Active Substance: METAMIZOLE SODIUM
     Indication: Product used for unknown indication
     Dosage: TIME INTERVAL: AS NECESSARY: FREQUENCY TEXT:  3 X 30 DROPS AS REQUIRED
  5. Aurobindo [Concomitant]
     Indication: Product used for unknown indication
  6. QUETIAPIN HEUMANN [Concomitant]
     Indication: Product used for unknown indication
     Dosage: RETARD?FREQUENCY TEXT: 1/2-1-0-0
  7. DIGITOXIN [Concomitant]
     Active Substance: DIGITOXIN
     Indication: Product used for unknown indication
     Dosage: FREQUENCY TEXT: MON WED FRI SUN=1/2TABL;TUES THRS SAT=1 TABL.
  8. PRUCALOPRIDE SUCCINATE [Concomitant]
     Active Substance: PRUCALOPRIDE SUCCINATE
     Indication: Product used for unknown indication
  9. LORAZEPAM [Concomitant]
     Active Substance: LORAZEPAM
     Indication: Product used for unknown indication
     Dosage: TIME INTERVAL: AS NECESSARY: 1.0?FREQUENCY TEXT: 3 X 1/2 TABLET AS REQUIRED
  10. COBALAMIN [Concomitant]
     Active Substance: COBALAMIN
     Indication: Product used for unknown indication
  11. CARVEDILOL [Concomitant]
     Active Substance: CARVEDILOL
     Indication: Product used for unknown indication
  12. LACOSAMIDE [Concomitant]
     Active Substance: LACOSAMIDE
     Indication: Product used for unknown indication
  13. COBALAMIN [Concomitant]
     Active Substance: COBALAMIN
     Indication: Product used for unknown indication
     Dosage: FREQUENCY TEXT: 1 AMPOULE / 4 WEEKS
  14. VITAMIN B DUO [Concomitant]
     Indication: Product used for unknown indication
     Dosage: TIME INTERVAL: 0.33333333 DAYS
  15. ATORVASTATIN [Concomitant]
     Active Substance: ATORVASTATIN
     Indication: Product used for unknown indication
  16. Novamin [Concomitant]
     Indication: Product used for unknown indication
  17. Silodosin accord [Concomitant]
     Indication: Product used for unknown indication
  18. SERTRALINE HYDROCHLORIDE [Concomitant]
     Active Substance: SERTRALINE HYDROCHLORIDE
     Indication: Product used for unknown indication
  19. COLECALCIFEROL ARISTO [Concomitant]
     Indication: Product used for unknown indication
     Dosage: 20.000 IE 500 ?G
  20. MOVICOL [Concomitant]
     Active Substance: POLYETHYLENE GLYCOL 3350\POTASSIUM CHLORIDE\SODIUM BICARBONATE\SODIUM CHLORIDE
     Indication: Product used for unknown indication
     Dosage: POWDER IN SACHET
  21. VIMPAT [Concomitant]
     Active Substance: LACOSAMIDE
     Indication: Product used for unknown indication
  22. CANDESARTAN [Concomitant]
     Active Substance: CANDESARTAN
     Indication: Product used for unknown indication

REACTIONS (16)
  - Device dislocation [Recovered/Resolved]
  - Hyperlipidaemia [Unknown]
  - Fall [Unknown]
  - Metastatic renal cell carcinoma [Unknown]
  - Disorientation [Unknown]
  - Transient ischaemic attack [Unknown]
  - Gastrostomy [Recovered/Resolved]
  - Erosive duodenitis [Unknown]
  - Dyslipidaemia [Unknown]
  - Epilepsy [Unknown]
  - Atrial fibrillation [Unknown]
  - Carotid artery stenosis [Unknown]
  - Subdural haematoma [Unknown]
  - Delirium [Unknown]
  - Craniocerebral injury [Unknown]
  - Subdural haematoma [Unknown]

NARRATIVE: CASE EVENT DATE: 20230101
